FAERS Safety Report 14760064 (Version 1)
Quarter: 2018Q2

REPORT INFORMATION
  Report Type: Report from Study
  Country: US (occurrence: US)
  Receive Date: 20180413
  Receipt Date: 20180413
  Transmission Date: 20180711
  Serious: Yes (Life-Threatening, Hospitalization, Other)
  Sender: FDA-Public Use
  Company Number: US-BRISTOL-MYERS SQUIBB COMPANY-BMS-2018-031594

PATIENT
  Age: 64 Year
  Sex: Female
  Weight: 79.8 kg

DRUGS (2)
  1. NIVOLUMAB [Suspect]
     Active Substance: NIVOLUMAB
     Indication: ADRENOCORTICAL CARCINOMA
     Dosage: 720 MG, UNK
     Route: 042
     Dates: start: 20170906, end: 20171213
  2. IPILIMUMAB [Suspect]
     Active Substance: IPILIMUMAB
     Indication: ADRENOCORTICAL CARCINOMA
     Dosage: 86 MG, UNK
     Route: 042
     Dates: start: 20170906, end: 20171115

REACTIONS (4)
  - Pneumocystis jirovecii pneumonia [Unknown]
  - Lung infection [Unknown]
  - Staphylococcal infection [Unknown]
  - Pneumonitis [Unknown]

NARRATIVE: CASE EVENT DATE: 20180115
